FAERS Safety Report 7501416-7 (Version None)
Quarter: 2011Q2

REPORT INFORMATION
  Report Type: 
  Country: None (occurrence: None)
  Receive Date: 20110524
  Receipt Date: 20110519
  Transmission Date: 20111010
  Serious: Yes (Death, Life-Threatening)
  Sender: FDA-Public Use
  Company Number: GB-PFIZER INC-2011102975

PATIENT
  Age: 80 Year
  Sex: Male
  Weight: 89.6 kg

DRUGS (18)
  1. SUSTANON [Concomitant]
     Indication: HYPOGONADISM MALE
  2. LEVOTHYROXINE [Concomitant]
     Indication: PRIMARY HYPOTHYROIDISM
  3. NEBIDO [Concomitant]
     Indication: BLOOD FOLLICLE STIMULATING HORMONE DECREASED
  4. TESTOSTERONE [Concomitant]
     Indication: BLOOD LUTEINISING HORMONE DECREASED
  5. LEVOTHYROXINE [Concomitant]
     Indication: BLOOD THYROID STIMULATING HORMONE DECREASED
     Dosage: 150 UG, 1X/DAY
     Dates: start: 19881028
  6. SUSTANON [Concomitant]
     Indication: BLOOD LUTEINISING HORMONE DECREASED
     Dosage: 250 MG, UNK
     Dates: start: 20000629
  7. TESTOSTERONE [Concomitant]
     Indication: BLOOD FOLLICLE STIMULATING HORMONE DECREASED
  8. PRIMOTESTON-DEPOT [Concomitant]
     Indication: LUTEINISING HORMONE DEFICIENCY
     Dosage: 250 MG, EVERY 3 WEEKS
     Dates: start: 19881216
  9. PRIMOTESTON-DEPOT [Concomitant]
     Indication: HYPOGONADISM MALE
  10. PREDNISOLONE [Concomitant]
     Indication: BLOOD CORTICOTROPHIN DECREASED
     Dosage: 7.5 MG, 1X/DAY
     Dates: start: 19881001
  11. NEBIDO [Concomitant]
     Indication: HYPOGONADISM MALE
  12. SOMATROPIN [Suspect]
     Indication: HYPOPITUITARISM
     Dosage: 0.5 MG/DAY ( 7 INJECTIONS PER WEEK)
     Route: 058
     Dates: start: 19980423
  13. HYDROCORTISONE [Concomitant]
     Indication: BLOOD CORTICOTROPHIN DECREASED
     Dosage: 35 MG, 1X/DAY
     Dates: start: 20050112
  14. HYDROCORTISONE [Concomitant]
     Dosage: 30 MG, 1X/DAY
     Dates: start: 19900427
  15. SUSTANON [Concomitant]
     Indication: BLOOD FOLLICLE STIMULATING HORMONE DECREASED
  16. NEBIDO [Concomitant]
     Indication: BLOOD LUTEINISING HORMONE DECREASED
     Dosage: 1000 MG, UNK
     Dates: start: 20070119
  17. TESTOSTERONE [Concomitant]
     Indication: HYPOGONADISM MALE
     Dosage: 5 MG, 1X/DAY
     Dates: start: 20000317
  18. PRIMOTESTON-DEPOT [Concomitant]
     Indication: BLOOD FOLLICLE STIMULATING HORMONE DECREASED

REACTIONS (1)
  - DEATH [None]
